FAERS Safety Report 9256750 (Version 2)
Quarter: 2013Q2

REPORT INFORMATION
  Report Type: Spontaneous
  Country: GB (occurrence: GB)
  Receive Date: 20130426
  Receipt Date: 20130507
  Transmission Date: 20140414
  Serious: Yes (Other)
  Sender: FDA-Public Use
  Company Number: GB-ROCHE-1218440

PATIENT
  Age: 65 Year
  Sex: Male

DRUGS (2)
  1. ACTILYSE [Suspect]
     Indication: ISCHAEMIC STROKE
     Route: 042
  2. ASPIRIN [Suspect]
     Indication: PRODUCT USED FOR UNKNOWN INDICATION
     Route: 065

REACTIONS (4)
  - Retroperitoneal haematoma [Unknown]
  - Blood fibrinogen decreased [Unknown]
  - Muscular weakness [Unknown]
  - Pain in extremity [Unknown]
